FAERS Safety Report 5081984-8 (Version None)
Quarter: 2006Q3

REPORT INFORMATION
  Report Type: 
  Country: None (occurrence: None)
  Receive Date: 20060811
  Receipt Date: 20060809
  Transmission Date: 20061208
  Serious: Yes (Hospitalization, Other)
  Sender: FDA-Public Use
  Company Number: FRWYE632409AUG06

PATIENT
  Age: 3 Year
  Sex: Female

DRUGS (1)
  1. ADVIL [Suspect]
     Indication: PYREXIA
     Dosage: 75 MG 1X PER 1 DAY, ORAL
     Route: 048
     Dates: start: 20060705, end: 20060708

REACTIONS (3)
  - LUNG DISORDER [None]
  - PLEURAL DISORDER [None]
  - RENAL FAILURE ACUTE [None]
